FAERS Safety Report 5231898-5 (Version None)
Quarter: 2007Q1

REPORT INFORMATION
  Report Type: 
  Country: None (occurrence: None)
  Receive Date: 20061201
  Receipt Date: 20060921
  Transmission Date: 20070707
  Serious: No
  Sender: FDA-Public Use
  Company Number: 2006PV021679

PATIENT
  Age: 55 Year
  Sex: Female
  Weight: 113.3993 kg

DRUGS (5)
  1. BYETTA [Suspect]
     Indication: DIABETES MELLITUS NON-INSULIN-DEPENDENT
     Dosage: SEE IMAGE
     Route: 058
     Dates: start: 20060101, end: 20060101
  2. BYETTA [Suspect]
     Indication: DIABETES MELLITUS NON-INSULIN-DEPENDENT
     Dosage: SEE IMAGE
     Route: 058
     Dates: start: 20060701, end: 20060809
  3. BYETTA [Suspect]
     Indication: DIABETES MELLITUS NON-INSULIN-DEPENDENT
     Dosage: SEE IMAGE
     Route: 058
     Dates: start: 20060810
  4. METFORMIN HCL [Concomitant]
  5. VICOPROFEN [Concomitant]

REACTIONS (6)
  - FALL [None]
  - NAUSEA [None]
  - ROTATOR CUFF SYNDROME [None]
  - UPPER LIMB FRACTURE [None]
  - VOMITING [None]
  - WEIGHT DECREASED [None]
